FAERS Safety Report 9472600 (Version 1)
Quarter: 2013Q3

REPORT INFORMATION
  Report Type: Spontaneous
  Country: US (occurrence: None)
  Receive Date: 20130821
  Receipt Date: 20130821
  Transmission Date: 20140515
  Serious: Yes (Life-Threatening, Hospitalization)
  Sender: FDA-Public Use
  Company Number: None

PATIENT
  Age: 67 Year
  Sex: Female

DRUGS (1)
  1. PROLIA [Suspect]
     Dosage: ADMINISTER 1 ML UNDER THE SKIN EVERY 6 MONTHS
     Dates: start: 20130307

REACTIONS (4)
  - Cystitis [None]
  - Gastric infection [None]
  - Myocardial infarction [None]
  - Nephrolithiasis [None]
